FAERS Safety Report 11180604 (Version 2)
Quarter: 2015Q3

REPORT INFORMATION
  Report Type: Spontaneous
  Country: CO (occurrence: CO)
  Receive Date: 20150611
  Receipt Date: 20150709
  Transmission Date: 20151125
  Serious: Yes (Other)
  Sender: FDA-Public Use
  Company Number: CO-PFIZER INC-2015193521

PATIENT
  Age: 80 Year
  Sex: Female

DRUGS (1)
  1. EPAMIN M [Suspect]
     Active Substance: PHENYTOIN
     Dosage: UNK
     Route: 048

REACTIONS (3)
  - Apparent death [Recovered/Resolved]
  - Toxicity to various agents [Unknown]
  - Overdose [Unknown]
